FAERS Safety Report 17802188 (Version 1)
Quarter: 2020Q2

REPORT INFORMATION
  Report Type: Spontaneous
  Country: US (occurrence: US)
  Receive Date: 20200518
  Receipt Date: 20200518
  Transmission Date: 20200714
  Serious: No
  Sender: FDA-Public Use
  Company Number: None

PATIENT
  Age: 57 Year
  Sex: Male

DRUGS (3)
  1. AFINITOR [Suspect]
     Active Substance: EVEROLIMUS
     Indication: HEPATIC CANCER
     Route: 048
     Dates: start: 20200422
  2. SIMVASTATIN TAB 40 MG [Concomitant]
  3. AMLODIPINE TAB 10 MG [Concomitant]

REACTIONS (2)
  - Renal artery stent placement [None]
  - Therapy interrupted [None]
